FAERS Safety Report 15535010 (Version 1)
Quarter: 2018Q4

REPORT INFORMATION
  Report Type: Spontaneous
  Country: US (occurrence: US)
  Receive Date: 20181022
  Receipt Date: 20181022
  Transmission Date: 20190205
  Serious: No
  Sender: FDA-Public Use
  Company Number: US-SHIRE-US201839978

PATIENT
  Age: 71 Year
  Sex: Male
  Weight: 81.63 kg

DRUGS (5)
  1. TAMSULOSIN [Concomitant]
     Active Substance: TAMSULOSIN
     Indication: PRODUCT USED FOR UNKNOWN INDICATION
  2. XIIDRA [Suspect]
     Active Substance: LIFITEGRAST
     Dosage: 1 GTT IN BOTH EYES, 2X/DAY:BID
     Route: 047
     Dates: start: 201810, end: 20181012
  3. OMEPRAZOLE. [Concomitant]
     Active Substance: OMEPRAZOLE
     Indication: PRODUCT USED FOR UNKNOWN INDICATION
  4. ATORVASTATIN [Concomitant]
     Active Substance: ATORVASTATIN
     Indication: PRODUCT USED FOR UNKNOWN INDICATION
  5. XIIDRA [Suspect]
     Active Substance: LIFITEGRAST
     Indication: DRY EYE
     Dosage: 1 GTT IN BOTH EYES, UNK
     Route: 047
     Dates: start: 20180803, end: 20180930

REACTIONS (2)
  - Instillation site pain [Not Recovered/Not Resolved]
  - Drug ineffective [Not Recovered/Not Resolved]

NARRATIVE: CASE EVENT DATE: 20180901
